FAERS Safety Report 14404731 (Version 1)
Quarter: 2018Q1

REPORT INFORMATION
  Report Type: Spontaneous
  Country: US (occurrence: US)
  Receive Date: 20180118
  Receipt Date: 20180118
  Transmission Date: 20180509
  Serious: Yes (Death, Other)
  Sender: FDA-Public Use
  Company Number: US-ZYDUS-018782

PATIENT
  Age: 17 Year
  Sex: Female

DRUGS (2)
  1. BUPROPION/BUPROPION HYDROCHLORIDE [Suspect]
     Active Substance: BUPROPION HYDROCHLORIDE
     Indication: PRODUCT USED FOR UNKNOWN INDICATION
     Route: 048
  2. METHYLPHENIDATE. [Concomitant]
     Active Substance: METHYLPHENIDATE
     Indication: PRODUCT USED FOR UNKNOWN INDICATION
     Route: 048

REACTIONS (6)
  - Cardiac arrest [Unknown]
  - Intentional product use issue [None]
  - Acute respiratory distress syndrome [Unknown]
  - Toxicity to various agents [Fatal]
  - Hypotension [Unknown]
  - Status epilepticus [Unknown]
